FAERS Safety Report 20098447 (Version 1)
Quarter: 2021Q4

REPORT INFORMATION
  Report Type: Spontaneous
  Country: CN (occurrence: CN)
  Receive Date: 20211122
  Receipt Date: 20211122
  Transmission Date: 20220303
  Serious: Yes (Hospitalization)
  Sender: FDA-Public Use
  Company Number: CN-ELI_LILLY_AND_COMPANY-CN202111005211

PATIENT
  Age: 59 Year
  Sex: Male
  Weight: 68 kg

DRUGS (1)
  1. HUMALOG MIX75/25 [Suspect]
     Active Substance: INSULIN LISPRO
     Indication: Blood glucose increased
     Dosage: 20 INTERNATIONAL UNIT, TID
     Route: 058
     Dates: start: 20211025, end: 20211102

REACTIONS (3)
  - Drug eruption [Recovering/Resolving]
  - Blood glucose abnormal [Unknown]
  - Injection site rash [Unknown]

NARRATIVE: CASE EVENT DATE: 20211025
